FAERS Safety Report 8157691 (Version 4)
Quarter: 2013Q1

REPORT INFORMATION
  Report Type: Spontaneous
  Country: US (occurrence: US)
  Receive Date: 20110927
  Receipt Date: 20130103
  Transmission Date: 20140127
  Serious: Yes (Hospitalization)
  Sender: FDA-Public Use
  Company Number: US-ASTRAZENECA-2011SE34438

PATIENT
  Age: 52 Year
  Sex: Male

DRUGS (9)
  1. SEROQUEL [Suspect]
     Indication: BIPOLAR DISORDER
     Route: 048
  2. SEROQUEL [Suspect]
     Indication: BIPOLAR DISORDER
     Route: 048
  3. SEROQUEL [Suspect]
     Indication: BIPOLAR DISORDER
     Route: 048
  4. SEROQUEL [Suspect]
     Indication: BIPOLAR DISORDER
     Route: 048
  5. SEROQUEL [Suspect]
     Indication: BIPOLAR DISORDER
     Route: 048
  6. NEXIUM [Concomitant]
  7. SOMA [Concomitant]
  8. NEURONTIN [Concomitant]
  9. RESTORIL [Concomitant]

REACTIONS (9)
  - Pneumonia [Unknown]
  - Muscle tightness [Recovering/Resolving]
  - Headache [Recovering/Resolving]
  - Abnormal behaviour [Unknown]
  - Insomnia [Unknown]
  - Dysphagia [Unknown]
  - Drug ineffective [Unknown]
  - Off label use [Unknown]
  - Drug dose omission [Unknown]
